FAERS Safety Report 4270812-6 (Version None)
Quarter: 2004Q1

REPORT INFORMATION
  Report Type: 
  Country: None (occurrence: None)
  Receive Date: 20040113
  Receipt Date: 20031218
  Transmission Date: 20041129
  Serious: Yes (Hospitalization)
  Sender: FDA-Public Use
  Company Number: 6979

PATIENT
  Age: 66 Year
  Sex: Female

DRUGS (1)
  1. METHOTREXATE [Suspect]
     Indication: RHEUMATOID ARTHRITIS
     Dosage: 1800 MG TOTAL IM
     Route: 030
     Dates: start: 19960101, end: 19980101

REACTIONS (5)
  - COCCIDIOIDOMYCOSIS [None]
  - LYMPHADENOPATHY [None]
  - PNEUMONIA BACTERIAL [None]
  - PRURITUS [None]
  - RASH MACULO-PAPULAR [None]
